FAERS Safety Report 9699872 (Version 2)
Quarter: 2013Q4

REPORT INFORMATION
  Report Type: Spontaneous
  Country: JP (occurrence: JP)
  Receive Date: 20131121
  Receipt Date: 20131121
  Transmission Date: 20140711
  Serious: Yes (Hospitalization)
  Sender: FDA-Public Use
  Company Number: JP-PFIZER INC-2013317965

PATIENT
  Age: 87 Year
  Sex: Male

DRUGS (1)
  1. SALAZOPYRIN [Suspect]
     Dosage: 500 MG, DAILY
     Route: 048
     Dates: start: 201309

REACTIONS (1)
  - Large intestine polyp [Recovered/Resolved]
